FAERS Safety Report 10517141 (Version 1)
Quarter: 2014Q4

REPORT INFORMATION
  Report Type: Spontaneous
  Country: US (occurrence: US)
  Receive Date: 20141014
  Receipt Date: 20141014
  Transmission Date: 20150528
  Serious: Yes (Other)
  Sender: FDA-Public Use
  Company Number: US-PFIZER INC-2014280549

PATIENT
  Age: 58 Year
  Sex: Male
  Weight: 113 kg

DRUGS (1)
  1. CELEBREX [Suspect]
     Active Substance: CELECOXIB
     Dosage: UNK

REACTIONS (3)
  - Intervertebral disc protrusion [Unknown]
  - Musculoskeletal stiffness [Unknown]
  - Arthralgia [Unknown]
